FAERS Safety Report 7387993 (Version 14)
Quarter: 2013Q4

REPORT INFORMATION
  Report Type: Spontaneous
  Country: GR (occurrence: GR)
  Receive Date: 20100514
  Receipt Date: 20131018
  Transmission Date: 20140711
  Serious: Yes (Death, Hospitalization, Other)
  Sender: FDA-Public Use
  Company Number: GR-BIOGENIDEC-2010BI013022

PATIENT
  Age: 37 Year
  Sex: Male
  Weight: 68 kg

DRUGS (4)
  1. TYSABRI [Suspect]
     Indication: RELAPSING-REMITTING MULTIPLE SCLEROSIS
     Route: 042
     Dates: start: 20080523, end: 20100308
  2. DITRUSOL [Concomitant]
  3. METHYLPREDNISOLONE [Concomitant]
     Indication: PROPHYLAXIS
     Route: 042
     Dates: start: 20100427, end: 20100501
  4. PREDNISOLONE [Concomitant]
     Indication: PROPHYLAXIS
     Route: 048

REACTIONS (3)
  - Epilepsy [Fatal]
  - Progressive multifocal leukoencephalopathy [Not Recovered/Not Resolved]
  - Multiple sclerosis relapse [Unknown]
